FAERS Safety Report 4602913-4 (Version None)
Quarter: 2005Q1

REPORT INFORMATION
  Report Type: 
  Country: None (occurrence: None)
  Receive Date: 20050307
  Receipt Date: 20050222
  Transmission Date: 20050727
  Serious: Yes (Hospitalization, Other)
  Sender: FDA-Public Use
  Company Number: 2004015200

PATIENT
  Age: 70 Year
  Sex: Female

DRUGS (11)
  1. LIPITOR [Suspect]
     Indication: HYPERCHOLESTEROLAEMIA
     Dosage: 10 MG (1 IN 1 D), ORAL
     Route: 048
     Dates: start: 20030801
  2. ASPIRIN [Concomitant]
  3. NIFEDIPINE [Concomitant]
  4. ATENOLOL [Concomitant]
  5. LOSARTAN POTASSIUM [Concomitant]
  6. ETHYL ICOSAPENTATE (ETHYL ICOSAPENTATE) [Concomitant]
  7. TEPRENONE (TEPRENONE) [Concomitant]
  8. TICLOPIDINE (TICLOPIDINE) [Concomitant]
  9. NITROGLYCERIN [Concomitant]
  10. BROTIZOLAM (BROTIZOLAM) [Concomitant]
  11. CLOTIAZEPAM (CLOTIAZEPAM) [Concomitant]

REACTIONS (6)
  - ANGINA UNSTABLE [None]
  - BLOOD PRESSURE INCREASED [None]
  - CORONARY ARTERY RESTENOSIS [None]
  - MALAISE [None]
  - NASOPHARYNGITIS [None]
  - NAUSEA [None]
